FAERS Safety Report 8235251-1 (Version None)
Quarter: 2012Q1

REPORT INFORMATION
  Report Type: 
  Country: None (occurrence: None)
  Receive Date: 20120326
  Receipt Date: 20120319
  Transmission Date: 20120608
  Serious: Yes (Hospitalization, Other)
  Sender: FDA-Public Use
  Company Number: US-ABBOTT-11P-163-0850752-00

PATIENT
  Sex: Male
  Weight: 88.53 kg

DRUGS (7)
  1. LUPRON DEPOT [Suspect]
     Indication: PROSTATOMEGALY
     Route: 030
     Dates: start: 20110201, end: 20110201
  2. ATENOLOL [Concomitant]
     Indication: HYPERTENSION
  3. HYDRALAZINE HCL [Concomitant]
     Indication: BLOOD GLUCOSE INCREASED
  4. CLONIDINE [Concomitant]
     Indication: HYPERTENSION
  5. LUPRON DEPOT [Suspect]
     Indication: PROSTATOMEGALY
     Dosage: TOTAL OF 4 SHOTS
     Route: 030
     Dates: start: 20100430, end: 20110218
  6. UNKNOWN MEDICATION [Concomitant]
     Indication: HYPERTENSION
  7. LUPRON DEPOT [Suspect]
     Indication: PROSTATE CANCER

REACTIONS (10)
  - HOT FLUSH [None]
  - VISION BLURRED [None]
  - DEHYDRATION [None]
  - PROSTATECTOMY [None]
  - PAIN IN EXTREMITY [None]
  - DRUG INEFFECTIVE [None]
  - GLYCOSYLATED HAEMOGLOBIN INCREASED [None]
  - BLOOD GLUCOSE INCREASED [None]
  - TYPE 2 DIABETES MELLITUS [None]
  - GYNAECOMASTIA [None]
